FAERS Safety Report 5992097-2 (Version None)
Quarter: 2008Q4

REPORT INFORMATION
  Report Type: 
  Country: None (occurrence: None)
  Receive Date: 20081211
  Receipt Date: 20080522
  Transmission Date: 20090506
  Serious: No
  Sender: FDA-Public Use
  Company Number: US-AMGEN-KDL276086

PATIENT
  Sex: Female
  Weight: 92.6 kg

DRUGS (2)
  1. ENBREL [Suspect]
     Indication: PSORIATIC ARTHROPATHY
     Route: 058
     Dates: start: 20071029
  2. ENBREL [Suspect]
     Indication: PSORIASIS

REACTIONS (2)
  - FATIGUE [None]
  - VITAMIN D DEFICIENCY [None]
